FAERS Safety Report 6180444-0 (Version None)
Quarter: 2009Q2

REPORT INFORMATION
  Report Type: 
  Country: None (occurrence: None)
  Receive Date: 20090506
  Receipt Date: 20090428
  Transmission Date: 20091009
  Serious: Yes (Other)
  Sender: FDA-Public Use
  Company Number: US-JNJFOC-20090500165

PATIENT
  Sex: Male
  Weight: 102.06 kg

DRUGS (1)
  1. RISPERDAL CONSTA [Suspect]
     Indication: NERVOUSNESS
     Route: 030

REACTIONS (3)
  - AMNESIA [None]
  - HEAD INJURY [None]
  - NASOPHARYNGITIS [None]
